FAERS Safety Report 20543508 (Version 1)
Quarter: 2022Q1

REPORT INFORMATION
  Report Type: Report from Study
  Country: DE (occurrence: DE)
  Receive Date: 20220302
  Receipt Date: 20220302
  Transmission Date: 20220423
  Serious: Yes (Hospitalization)
  Sender: FDA-Public Use
  Company Number: DE-CELGENE-DEU-20210809395

PATIENT
  Age: 81 Year
  Sex: Female

DRUGS (37)
  1. DARZALEX [Suspect]
     Active Substance: DARATUMUMAB
     Indication: Plasma cell myeloma
     Route: 041
     Dates: start: 20200801, end: 20201124
  2. DARZALEX [Suspect]
     Active Substance: DARATUMUMAB
     Dosage: 116.5714 MILLIGRAM
     Route: 041
     Dates: start: 20200611, end: 20200804
  3. DARZALEX [Suspect]
     Active Substance: DARATUMUMAB
     Dosage: 116.5714 MILLIGRAM
     Route: 041
     Dates: start: 20200817, end: 20201124
  4. DEXAMETHASONE [Suspect]
     Active Substance: DEXAMETHASONE
     Indication: Plasma cell myeloma
     Route: 048
     Dates: start: 20200803, end: 20200810
  5. DEXAMETHASONE [Suspect]
     Active Substance: DEXAMETHASONE
     Dosage: 1.1429 MILLIGRAM
     Route: 048
     Dates: start: 20201006, end: 20201026
  6. DEXAMETHASONE [Suspect]
     Active Substance: DEXAMETHASONE
     Dosage: 8 MILLIGRAM
     Route: 048
     Dates: start: 20200908, end: 20200928
  7. DEXAMETHASONE [Suspect]
     Active Substance: DEXAMETHASONE
     Dosage: 2.2857 MILLIGRAM
     Route: 048
     Dates: start: 20200811, end: 20200831
  8. DEXAMETHASONE [Suspect]
     Active Substance: DEXAMETHASONE
     Route: 048
     Dates: start: 20200702, end: 20200708
  9. DEXAMETHASONE [Suspect]
     Active Substance: DEXAMETHASONE
     Dosage: 2.2857 MILLIGRAM
     Route: 048
     Dates: start: 20200611, end: 20200701
  10. DEXAMETHASONE [Suspect]
     Active Substance: DEXAMETHASONE
     Route: 048
     Dates: start: 20200901, end: 20200907
  11. DEXAMETHASONE [Suspect]
     Active Substance: DEXAMETHASONE
     Route: 048
     Dates: start: 20200709, end: 20200712
  12. DEXAMETHASONE [Suspect]
     Active Substance: DEXAMETHASONE
     Dosage: 2.2857 MILLIGRAM
     Route: 048
     Dates: start: 20200713, end: 20200802
  13. DEXAMETHASONE [Suspect]
     Active Substance: DEXAMETHASONE
     Route: 048
     Dates: start: 20200929, end: 20201005
  14. DEXAMETHASONE [Suspect]
     Active Substance: DEXAMETHASONE
     Route: 048
     Dates: start: 20210511, end: 20210517
  15. DEXAMETHASONE [Suspect]
     Active Substance: DEXAMETHASONE
     Route: 048
     Dates: start: 20210518, end: 20210607
  16. DEXAMETHASONE [Suspect]
     Active Substance: DEXAMETHASONE
     Route: 048
     Dates: start: 20210323, end: 20210412
  17. DEXAMETHASONE [Suspect]
     Active Substance: DEXAMETHASONE
     Route: 048
     Dates: start: 20210420, end: 20210510
  18. DEXAMETHASONE [Suspect]
     Active Substance: DEXAMETHASONE
     Route: 048
     Dates: start: 20210316, end: 20210322
  19. DEXAMETHASONE [Suspect]
     Active Substance: DEXAMETHASONE
     Route: 048
     Dates: start: 20210413, end: 20210419
  20. REVLIMID [Suspect]
     Active Substance: LENALIDOMIDE
     Indication: Hypothyroidism
     Route: 048
     Dates: start: 20200901, end: 20200907
  21. REVLIMID [Suspect]
     Active Substance: LENALIDOMIDE
     Route: 048
     Dates: start: 20200713, end: 20200802
  22. REVLIMID [Suspect]
     Active Substance: LENALIDOMIDE
     Route: 048
     Dates: start: 20200702, end: 20200708
  23. REVLIMID [Suspect]
     Active Substance: LENALIDOMIDE
     Route: 048
     Dates: start: 20200803, end: 20200810
  24. REVLIMID [Suspect]
     Active Substance: LENALIDOMIDE
     Route: 048
     Dates: start: 20200811, end: 20200831
  25. REVLIMID [Suspect]
     Active Substance: LENALIDOMIDE
     Route: 048
     Dates: start: 20200611, end: 20200701
  26. REVLIMID [Suspect]
     Active Substance: LENALIDOMIDE
     Route: 048
     Dates: start: 20201006, end: 20201026
  27. REVLIMID [Suspect]
     Active Substance: LENALIDOMIDE
     Route: 048
     Dates: start: 20200709, end: 20200712
  28. REVLIMID [Suspect]
     Active Substance: LENALIDOMIDE
     Route: 048
     Dates: start: 20200908, end: 20200928
  29. REVLIMID [Suspect]
     Active Substance: LENALIDOMIDE
     Route: 048
     Dates: start: 20200929, end: 20201005
  30. REVLIMID [Suspect]
     Active Substance: LENALIDOMIDE
     Dosage: 10 MILLIGRAM
     Route: 048
     Dates: start: 20210420, end: 20210510
  31. REVLIMID [Suspect]
     Active Substance: LENALIDOMIDE
     Route: 048
     Dates: start: 20210518, end: 20210607
  32. REVLIMID [Suspect]
     Active Substance: LENALIDOMIDE
     Route: 048
     Dates: start: 20210323, end: 20210412
  33. REVLIMID [Suspect]
     Active Substance: LENALIDOMIDE
     Route: 048
     Dates: start: 20210316, end: 20210322
  34. REVLIMID [Suspect]
     Active Substance: LENALIDOMIDE
     Route: 048
     Dates: start: 20210511, end: 20210517
  35. REVLIMID [Suspect]
     Active Substance: LENALIDOMIDE
     Route: 048
     Dates: start: 20210413, end: 20210419
  36. REVLIMID [Suspect]
     Active Substance: LENALIDOMIDE
     Route: 048
     Dates: start: 20211006, end: 20211026
  37. ASPIRIN [Concomitant]
     Active Substance: ASPIRIN
     Indication: Product used for unknown indication
     Route: 065
     Dates: start: 20190619

REACTIONS (3)
  - Atrioventricular block complete [Recovered/Resolved]
  - Cerebral infarction [Recovered/Resolved]
  - Gastritis haemorrhagic [Recovered/Resolved]

NARRATIVE: CASE EVENT DATE: 20210630
